FAERS Safety Report 5399333-4 (Version None)
Quarter: 2007Q3

REPORT INFORMATION
  Report Type: 
  Country: None (occurrence: None)
  Receive Date: 20070727
  Receipt Date: 20070717
  Transmission Date: 20080115
  Serious: Yes (Other)
  Sender: FDA-Public Use
  Company Number: US-ROCHE-463196

PATIENT
  Age: 48 Year
  Sex: Male

DRUGS (10)
  1. PEGASYS [Suspect]
     Indication: HEPATITIS C
     Dosage: STRENGTH REPORTED AS 180 MCG/0.5CC.
     Route: 058
     Dates: start: 20060314
  2. COPEGUS [Suspect]
     Indication: HEPATITIS C
     Route: 048
     Dates: start: 20060314
  3. KLONOPIN [Concomitant]
     Indication: TREMOR
     Dosage: AT BEDTIME. INIDICATION REPORTED AS TREMORS, PANIC.
     Route: 048
  4. WELLBUTRIN [Suspect]
     Indication: DEPRESSION
     Route: 048
     Dates: start: 20060101
  5. WELLBUTRIN [Suspect]
     Route: 048
  6. LEXAPRO [Concomitant]
     Indication: DEPRESSION
     Dates: start: 20060101
  7. OXYCONTIN [Concomitant]
     Indication: MYALGIA
  8. ATENOLOL [Concomitant]
  9. XANAX [Concomitant]
     Indication: ANXIETY
  10. PROTONIX [Concomitant]

REACTIONS (9)
  - DEHYDRATION [None]
  - DEPRESSION [None]
  - DIARRHOEA [None]
  - FEELING ABNORMAL [None]
  - HYPERSOMNIA [None]
  - PLATELET COUNT DECREASED [None]
  - RED BLOOD CELL COUNT DECREASED [None]
  - TREATMENT FAILURE [None]
  - WHITE BLOOD CELL COUNT DECREASED [None]
